FAERS Safety Report 9288729 (Version 1)
Quarter: 2013Q2

REPORT INFORMATION
  Report Type: Spontaneous
  Country: US (occurrence: US)
  Receive Date: 20130514
  Receipt Date: 20130514
  Transmission Date: 20140414
  Serious: No
  Sender: FDA-Public Use
  Company Number: US-MYLANLABS-2012S1008637

PATIENT
  Age: 46 Year
  Sex: Female
  Weight: 53.52 kg

DRUGS (2)
  1. INDOMETHACIN [Suspect]
     Indication: OPTIC NEURITIS
     Route: 048
  2. VITAMIN D [Concomitant]
     Dates: start: 2011

REACTIONS (1)
  - Hypoaesthesia [Not Recovered/Not Resolved]
